FAERS Safety Report 24439498 (Version 1)
Quarter: 2024Q4

REPORT INFORMATION
  Report Type: Spontaneous
  Country: TR (occurrence: TR)
  Receive Date: 20241015
  Receipt Date: 20241015
  Transmission Date: 20250115
  Serious: Yes (Life-Threatening)
  Sender: GE HEALTHCARE
  Company Number: TR-GE HEALTHCARE-2024CSU011405

PATIENT
  Age: 42 Year
  Sex: Female
  Weight: 60 kg

DRUGS (1)
  1. CLARISCAN [Suspect]
     Active Substance: GADOTERATE MEGLUMINE
     Indication: Imaging procedure
     Dosage: UNK UNK, TOTAL
     Route: 042
     Dates: start: 20241002, end: 20241002

REACTIONS (5)
  - Oxygen consumption increased [Recovering/Resolving]
  - Dyspnoea [Recovering/Resolving]
  - Tremor [Recovering/Resolving]
  - Cyanosis [Recovering/Resolving]
  - Chills [Recovering/Resolving]

NARRATIVE: CASE EVENT DATE: 20241002
